FAERS Safety Report 8128566 (Version 2)
Quarter: 2013Q2

REPORT INFORMATION
  Report Type: Spontaneous
  Country: US (occurrence: US)
  Receive Date: 20110909
  Receipt Date: 20130627
  Transmission Date: 20140414
  Serious: No
  Sender: FDA-Public Use
  Company Number: US-BAYER-2011-023311

PATIENT
  Sex: Female

DRUGS (1)
  1. MIRENA [Suspect]
     Dosage: UNK
     Dates: start: 200704

REACTIONS (5)
  - Metrorrhagia [None]
  - Amenorrhoea [None]
  - Medical device discomfort [None]
  - Pregnancy with contraceptive device [None]
  - Drug ineffective [None]
